FAERS Safety Report 11733798 (Version 4)
Quarter: 2016Q1

REPORT INFORMATION
  Report Type: Report from Study
  Country: CA (occurrence: CA)
  Receive Date: 20151113
  Receipt Date: 20160122
  Transmission Date: 20160525
  Serious: Yes (Life-Threatening, Other)
  Sender: FDA-Public Use
  Company Number: CA-AMGEN-CANSL2015034328

PATIENT
  Age: 50 Year
  Sex: Female
  Weight: 80.73 kg

DRUGS (7)
  1. HUMIRA [Concomitant]
     Active Substance: ADALIMUMAB
     Dosage: UNK
  2. REACTINE                           /00884302/ [Concomitant]
     Active Substance: CETIRIZINE HYDROCHLORIDE
     Indication: PRODUCTIVE COUGH
  3. PREDNISONE. [Concomitant]
     Active Substance: PREDNISONE
     Dosage: UNK
  4. ENBREL [Suspect]
     Active Substance: ETANERCEPT
     Dosage: 25 MG, 2 TIMES/WK
     Route: 065
     Dates: start: 20130121
  5. ENBREL [Suspect]
     Active Substance: ETANERCEPT
     Indication: RHEUMATOID ARTHRITIS
     Dosage: UNK UNK, QWK
     Route: 065
     Dates: start: 20090331
  6. REACTINE                           /00884302/ [Concomitant]
     Active Substance: CETIRIZINE HYDROCHLORIDE
     Indication: DYSPNOEA
     Dosage: UNK
  7. BENADRYL [Concomitant]
     Active Substance: DIPHENHYDRAMINE HYDROCHLORIDE
     Dosage: UNK

REACTIONS (51)
  - Feeling abnormal [Unknown]
  - Dyspnoea [Unknown]
  - Productive cough [Recovered/Resolved]
  - Pain [Unknown]
  - Malaise [Unknown]
  - Skin discolouration [Unknown]
  - Urticaria [Recovering/Resolving]
  - Muscular weakness [Unknown]
  - Vomiting [Unknown]
  - Irritability [Unknown]
  - Pain in extremity [Unknown]
  - Arthralgia [Unknown]
  - Skin atrophy [Unknown]
  - Nausea [Unknown]
  - Drug hypersensitivity [Unknown]
  - Walking aid user [Unknown]
  - Victim of sexual abuse [Unknown]
  - Insomnia [Unknown]
  - Adverse drug reaction [Unknown]
  - Swelling [Unknown]
  - Nerve injury [Unknown]
  - Flatulence [Unknown]
  - Asthenia [Unknown]
  - Cerebral disorder [Unknown]
  - Abdominal discomfort [Unknown]
  - Fatigue [Unknown]
  - Underdose [Unknown]
  - Fall [Unknown]
  - Hyperhidrosis [Unknown]
  - Muscle disorder [Unknown]
  - Pericarditis [Unknown]
  - Stress [Unknown]
  - Chills [Unknown]
  - Anxiety [Unknown]
  - Musculoskeletal pain [Unknown]
  - Bone pain [Unknown]
  - Activities of daily living impaired [Unknown]
  - Urinary incontinence [Unknown]
  - Paraesthesia [Unknown]
  - Peripheral swelling [Unknown]
  - Arthritis [Unknown]
  - Depression [Unknown]
  - Accident [Unknown]
  - Head injury [Unknown]
  - Disability [Unknown]
  - Mobility decreased [Unknown]
  - Pyrexia [Unknown]
  - Mental fatigue [Unknown]
  - Wrong technique in product usage process [Unknown]
  - Loss of employment [Unknown]
  - White blood cell count decreased [Unknown]

NARRATIVE: CASE EVENT DATE: 2009
